FAERS Safety Report 10241642 (Version 1)
Quarter: 2014Q2

REPORT INFORMATION
  Report Type: Spontaneous
  Country: US (occurrence: None)
  Receive Date: 20140613
  Receipt Date: 20140613
  Transmission Date: 20141212
  Serious: Yes (Other)
  Sender: FDA-Public Use
  Company Number: UNT-2014-001581

PATIENT
  Age: 75 Year
  Sex: Male
  Weight: 86.2 kg

DRUGS (1)
  1. TYVASO (TREPROSTINIL SODIUM) INHALATION GAS, 0.6MG/ML [Suspect]
     Indication: PULMONARY ARTERIAL HYPERTENSION
     Route: 055
     Dates: start: 20140322

REACTIONS (3)
  - Liver disorder [None]
  - Liver tenderness [None]
  - Productive cough [None]
